FAERS Safety Report 13389900 (Version 2)
Quarter: 2017Q2

REPORT INFORMATION
  Report Type: Report from Study
  Country: US (occurrence: US)
  Receive Date: 20170331
  Receipt Date: 20170421
  Transmission Date: 20170830
  Serious: Yes (Other)
  Sender: FDA-Public Use
  Company Number: US-AMGEN-USASL2017046755

PATIENT
  Age: 50 Year
  Sex: Female

DRUGS (2)
  1. REPATHA [Suspect]
     Active Substance: EVOLOCUMAB
     Indication: HYPERCHOLESTEROLAEMIA
     Dosage: 140 MG, Q2WK
     Route: 065
  2. METHOTREXATE. [Concomitant]
     Active Substance: METHOTREXATE

REACTIONS (7)
  - Feeling abnormal [Unknown]
  - Head discomfort [Unknown]
  - Asthenia [Unknown]
  - Drug dose omission [Unknown]
  - Hypophagia [Unknown]
  - Malaise [Unknown]
  - Cough [Unknown]
